FAERS Safety Report 25403687 (Version 2)
Quarter: 2025Q3

REPORT INFORMATION
  Report Type: Spontaneous
  Country: US (occurrence: US)
  Receive Date: 20250605
  Receipt Date: 20250810
  Transmission Date: 20251020
  Serious: No
  Sender: ALEXION PHARMACEUTICALS
  Company Number: US-AstraZeneca-CH-00880671AP

PATIENT
  Sex: Male

DRUGS (1)
  1. SYMBICORT [Suspect]
     Active Substance: BUDESONIDE\FORMOTEROL FUMARATE DIHYDRATE
     Route: 065

REACTIONS (9)
  - Lip injury [Unknown]
  - Lip haemorrhage [Unknown]
  - Wrong technique in device usage process [Unknown]
  - Discomfort [Unknown]
  - Lip discolouration [Unknown]
  - Device malfunction [Unknown]
  - Lip pain [Unknown]
  - Lip blister [Unknown]
  - Product dose omission issue [Unknown]
